FAERS Safety Report 7750641-9 (Version None)
Quarter: 2011Q3

REPORT INFORMATION
  Report Type: 
  Country: None (occurrence: None)
  Receive Date: 20110914
  Receipt Date: 20110907
  Transmission Date: 20111222
  Serious: Yes (Hospitalization)
  Sender: FDA-Public Use
  Company Number: US-GLAXOSMITHKLINE-A0943722A

PATIENT
  Age: 70 Year
  Sex: Female

DRUGS (12)
  1. CENTRUM SILVER [Concomitant]
  2. LOVAZA [Concomitant]
  3. TOLBUTAMIDE [Concomitant]
  4. FUROSEMIDE [Concomitant]
  5. CHLORIDE SALT [Concomitant]
  6. ATENOLOL [Concomitant]
  7. ADVAIR DISKUS 100/50 [Suspect]
     Indication: CHRONIC OBSTRUCTIVE PULMONARY DISEASE
     Dosage: 1PUFF TWICE PER DAY
     Route: 055
     Dates: start: 20060101
  8. ASPIRIN [Concomitant]
  9. CEFUROXIME [Concomitant]
  10. FERROUS SULFATE TAB [Concomitant]
  11. VIT B [Concomitant]
  12. PRILOSEC [Concomitant]

REACTIONS (2)
  - PRODUCT QUALITY ISSUE [None]
  - LUNG NEOPLASM MALIGNANT [None]
